FAERS Safety Report 9797880 (Version 1)
Quarter: 2014Q1

REPORT INFORMATION
  Report Type: Spontaneous
  Country: US (occurrence: None)
  Receive Date: 20140102
  Receipt Date: 20140102
  Transmission Date: 20141002
  Serious: Yes (Hospitalization)
  Sender: FDA-Public Use
  Company Number: None

PATIENT
  Age: 69 Year
  Sex: Male
  Weight: 82.56 kg

DRUGS (12)
  1. ALEMTUZUMAB [Suspect]
     Indication: MULTIPLE SCLEROSIS
     Route: 042
     Dates: start: 20130212, end: 20130214
  2. ACYCLOVIR [Concomitant]
  3. CARBAMAZEPINE [Concomitant]
  4. CLONAZEPAM [Concomitant]
  5. CLOPIDOGREL [Concomitant]
  6. NEURONTIN [Concomitant]
  7. NUCYNTA [Concomitant]
  8. ROPINIROLE [Concomitant]
  9. AMLODIPINE BENAZEPRIL HYDROCHLORIDE [Concomitant]
  10. NORCO [Concomitant]
  11. ITRACONAZOLE [Concomitant]
  12. ACTHAR GEL [Concomitant]

REACTIONS (6)
  - Neck pain [None]
  - Intervertebral discitis [None]
  - Osteomyelitis [None]
  - Staphylococcal infection [None]
  - Urinary tract infection [None]
  - Headache [None]
